FAERS Safety Report 7377750-0 (Version None)
Quarter: 2011Q1

REPORT INFORMATION
  Report Type: 
  Country: None (occurrence: None)
  Receive Date: 20110328
  Receipt Date: 20110310
  Transmission Date: 20110831
  Serious: No
  Sender: FDA-Public Use
  Company Number: US-ROXANE LABORATORIES, INC.-2011-RO-00379RO

PATIENT
  Sex: Female

DRUGS (7)
  1. PREDNISONE [Suspect]
     Route: 048
  2. OSCAL [Concomitant]
  3. FOLIC ACID [Concomitant]
     Dosage: 1 MG
  4. SINGULAIR [Concomitant]
     Indication: ASTHMA
     Dosage: 10 MG
  5. PROAIR HFA [Concomitant]
     Indication: ASTHMA
  6. SYMBICORT [Concomitant]
     Indication: ASTHMA
  7. PREDNISONE [Suspect]
     Indication: ASTHMA
     Route: 048

REACTIONS (3)
  - WEIGHT INCREASED [None]
  - BONE DISORDER [None]
  - OSTEOPOROSIS [None]
